FAERS Safety Report 21582108 (Version 6)
Quarter: 2025Q1

REPORT INFORMATION
  Report Type: Report from Study
  Country: US (occurrence: US)
  Receive Date: 20221111
  Receipt Date: 20250326
  Transmission Date: 20250409
  Serious: Yes (Other)
  Sender: TAKEDA
  Company Number: US-TAKEDA-2022TUS065954

PATIENT
  Sex: Female
  Weight: 62 kg

DRUGS (26)
  1. HUMAN IMMUNOGLOBULIN G [Suspect]
     Active Substance: HUMAN IMMUNOGLOBULIN G
     Indication: Immunodeficiency common variable
     Dosage: 40 GRAM, Q2WEEKS
     Dates: start: 20220707
  2. DIPHENHYDRAMINE [Concomitant]
     Active Substance: DIPHENHYDRAMINE
  3. DIPHENHYDRAMINE HYDROCHLORIDE [Concomitant]
     Active Substance: DIPHENHYDRAMINE HYDROCHLORIDE
  4. EPINEPHRINE [Concomitant]
     Active Substance: EPINEPHRINE
  5. ESTRADIOL [Concomitant]
     Active Substance: ESTRADIOL
  6. SIMVASTATIN [Concomitant]
     Active Substance: SIMVASTATIN
  7. ACETAMINOPHEN [Concomitant]
     Active Substance: ACETAMINOPHEN
  8. BUPROPION [Concomitant]
     Active Substance: BUPROPION
  9. ASPIRIN [Concomitant]
     Active Substance: ASPIRIN
  10. AMBIEN [Concomitant]
     Active Substance: ZOLPIDEM TARTRATE
  11. RESTASIS [Concomitant]
     Active Substance: CYCLOSPORINE
  12. SYNTHROID [Concomitant]
     Active Substance: LEVOTHYROXINE SODIUM
  13. Lmx [Concomitant]
  14. FASENRA [Concomitant]
     Active Substance: BENRALIZUMAB
  15. CYMBALTA [Concomitant]
     Active Substance: DULOXETINE HYDROCHLORIDE
  16. BUPROPION HYDROCHLORIDE [Concomitant]
     Active Substance: BUPROPION HYDROCHLORIDE
  17. CUTAQUIG [Concomitant]
     Active Substance: HUMAN IMMUNOGLOBULIN G
     Dosage: 15 GRAM, Q2WEEKS
  18. CUTAQUIG [Concomitant]
     Active Substance: HUMAN IMMUNOGLOBULIN G
     Dosage: 12 GRAM, Q2WEEKS
  19. CUTAQUIG [Concomitant]
     Active Substance: HUMAN IMMUNOGLOBULIN G
     Dosage: UNK UNK, 1/WEEK
  20. LIDOCAINE [Concomitant]
     Active Substance: LIDOCAINE
  21. WELLBUTRIN XL [Concomitant]
     Active Substance: BUPROPION HYDROCHLORIDE
  22. VIVELLE [Concomitant]
     Active Substance: ESTRADIOL
  23. MINOXIDIL [Concomitant]
     Active Substance: MINOXIDIL
  24. LEVOTHYROXINE [Concomitant]
     Active Substance: LEVOTHYROXINE
  25. LOSARTAN [Concomitant]
     Active Substance: LOSARTAN
  26. SIMPONI [Concomitant]
     Active Substance: GOLIMUMAB

REACTIONS (13)
  - Oesophageal rupture [Unknown]
  - Hiatus hernia [Unknown]
  - Pneumonia [Unknown]
  - Ear infection [Unknown]
  - Weight decreased [Unknown]
  - Product dose omission issue [Unknown]
  - Infusion site discharge [Unknown]
  - Asthma [Unknown]
  - Infusion site urticaria [Unknown]
  - Infusion site pruritus [Unknown]
  - Cough [Unknown]
  - Injection site erythema [Recovered/Resolved]
  - Injection site pruritus [Recovered/Resolved]
